FAERS Safety Report 14321782 (Version 3)
Quarter: 2018Q1

REPORT INFORMATION
  Report Type: Report from Study
  Country: US (occurrence: US)
  Receive Date: 20171224
  Receipt Date: 20180111
  Transmission Date: 20180509
  Serious: No
  Sender: FDA-Public Use
  Company Number: US-AMGEN-USASL2017188941

PATIENT
  Age: 58 Year
  Sex: Female

DRUGS (3)
  1. VASELINE PURE [Suspect]
     Active Substance: PETROLATUM
     Indication: PSORIASIS
     Dosage: UNK
     Route: 065
     Dates: start: 201712
  2. TYLENOL [Suspect]
     Active Substance: ACETAMINOPHEN
     Indication: PSORIASIS
     Dosage: UNK
     Route: 065
  3. ENBREL [Suspect]
     Active Substance: ETANERCEPT
     Indication: PSORIASIS
     Dosage: 50 MG, 2 TIMES/WK
     Route: 065
     Dates: start: 20171213

REACTIONS (7)
  - Secretion discharge [Not Recovered/Not Resolved]
  - Hyperhidrosis [Unknown]
  - Skin discolouration [Unknown]
  - Skin sensitisation [Unknown]
  - Dry skin [Unknown]
  - Gait disturbance [Unknown]
  - Psoriasis [Not Recovered/Not Resolved]

NARRATIVE: CASE EVENT DATE: 201712
